FAERS Safety Report 5787601-3 (Version None)
Quarter: 2008Q2

REPORT INFORMATION
  Report Type: 
  Country: None (occurrence: None)
  Receive Date: 20080625
  Receipt Date: 20080617
  Transmission Date: 20081010
  Serious: Yes (Hospitalization)
  Sender: FDA-Public Use
  Company Number: JP-MERCK-0806USA07583

PATIENT
  Age: 62 Year
  Sex: Male

DRUGS (5)
  1. HYZAAR [Suspect]
     Indication: HYPERTENSION
     Route: 048
     Dates: start: 20080214, end: 20080606
  2. [THERAPY UNSPECIFIED] [Suspect]
     Indication: DIZZINESS
     Route: 065
     Dates: start: 20080401
  3. CRESTOR [Concomitant]
     Indication: DIZZINESS
     Route: 048
     Dates: start: 20071201
  4. ACTOS [Concomitant]
     Route: 048
  5. AMARYL [Concomitant]
     Route: 048

REACTIONS (1)
  - EOSINOPHILIC PNEUMONIA [None]
